FAERS Safety Report 7817164-X (Version None)
Quarter: 2011Q4

REPORT INFORMATION
  Report Type: 
  Country: None (occurrence: None)
  Receive Date: 20111017
  Receipt Date: 20111017
  Transmission Date: 20120403
  Serious: Yes (Life-Threatening, Other)
  Sender: FDA-Public Use
  Company Number: None

PATIENT
  Age: 53 Year
  Sex: Female
  Weight: 95.254 kg

DRUGS (1)
  1. ALLI [Suspect]

REACTIONS (5)
  - ANXIETY [None]
  - LIVER INJURY [None]
  - ABDOMINAL PAIN [None]
  - MALAISE [None]
  - FEELING ABNORMAL [None]
